FAERS Safety Report 14916254 (Version 1)
Quarter: 2018Q2

REPORT INFORMATION
  Report Type: Report from Study
  Country: DE (occurrence: DE)
  Receive Date: 20180519
  Receipt Date: 20180519
  Transmission Date: 20180711
  Serious: Yes (Life-Threatening, Hospitalization, Other)
  Sender: FDA-Public Use
  Company Number: PHHY2018DE013042

PATIENT
  Age: 75 Year
  Sex: Male
  Weight: 91 kg

DRUGS (13)
  1. TORASEMID 1A PHARMA [Suspect]
     Active Substance: TORSEMIDE
     Indication: WEIGHT INCREASED
  2. TORASEMID 1A PHARMA [Suspect]
     Active Substance: TORSEMIDE
     Indication: CARDIAC FAILURE CHRONIC
     Dosage: 30 MG, QD (20 MG FOR DIURESIS AND 10 MG INCONTEXT OF WEIGHT GAIN)
     Route: 048
     Dates: start: 20171201
  3. CLARITHROMYCIN 1A PHARMA [Suspect]
     Active Substance: CLARITHROMYCIN
     Indication: BRONCHITIS
     Dosage: 500 MG, QD
     Route: 048
     Dates: start: 20180307, end: 20180327
  4. EPLERENON 1 A PHARMA [Suspect]
     Active Substance: EPLERENONE
     Indication: CARDIAC FAILURE
     Dosage: 25 MG, QD
     Route: 048
  5. ALLOPURINOL. [Concomitant]
     Active Substance: ALLOPURINOL
     Indication: PRODUCT USED FOR UNKNOWN INDICATION
     Dosage: 100 MG, QD
     Route: 048
  6. PANTOPRAZOLE SODIUM. [Suspect]
     Active Substance: PANTOPRAZOLE SODIUM
     Indication: PROPHYLAXIS
     Dosage: 40 MG, QD
     Route: 048
  7. FOSTER [Concomitant]
     Active Substance: BECLOMETHASONE\FORMOTEROL
     Indication: BRONCHITIS CHRONIC
     Route: 048
  8. TORASEMID 1A PHARMA [Suspect]
     Active Substance: TORSEMIDE
     Indication: POLYURIA
  9. LIXIANA [Concomitant]
     Active Substance: EDOXABAN TOSYLATE
     Indication: ANTICOAGULANT THERAPY
     Dosage: 30 MG, QD
     Route: 048
  10. BISOPROLOL 1A PHARMA [Suspect]
     Active Substance: BISOPROLOL
     Indication: CARDIAC FAILURE
     Dosage: 2.5 MG, QD
     Route: 048
  11. SPIRIVA [Concomitant]
     Active Substance: TIOTROPIUM BROMIDE MONOHYDRATE
     Indication: BRONCHITIS CHRONIC
     Dosage: 0.018 UG, QD
     Route: 055
  12. RANTUDIL [Concomitant]
     Active Substance: ACEMETACIN
     Indication: BRONCHITIS CHRONIC
     Dosage: 180 MG, QD
     Route: 048
  13. LOSARTAN. [Concomitant]
     Active Substance: LOSARTAN
     Indication: BLOOD PRESSURE ABNORMAL
     Dosage: UNK
     Route: 048

REACTIONS (32)
  - Renal failure [Not Recovered/Not Resolved]
  - Dyspnoea [Recovered/Resolved]
  - Chronic kidney disease [Not Recovered/Not Resolved]
  - Atrial fibrillation [Not Recovered/Not Resolved]
  - Gout [Not Recovered/Not Resolved]
  - Throat irritation [Unknown]
  - Cardiac failure chronic [Not Recovered/Not Resolved]
  - Weight increased [Unknown]
  - Atrial flutter [Not Recovered/Not Resolved]
  - Decreased appetite [Unknown]
  - Bronchospasm [None]
  - Sleep disorder [None]
  - Thirst [Unknown]
  - Dyspnoea [Not Recovered/Not Resolved]
  - Fatigue [Not Recovered/Not Resolved]
  - Oedema peripheral [None]
  - Pulmonary oedema [Recovered/Resolved]
  - Epistaxis [Not Recovered/Not Resolved]
  - Bronchitis [Not Recovered/Not Resolved]
  - Fluid retention [Unknown]
  - Nasopharyngitis [Not Recovered/Not Resolved]
  - Pain [Not Recovered/Not Resolved]
  - Cough [Unknown]
  - Blood pressure decreased [Not Recovered/Not Resolved]
  - Cardiac failure chronic [None]
  - Sputum discoloured [None]
  - Condition aggravated [None]
  - Oedema peripheral [Unknown]
  - Peripheral swelling [Unknown]
  - Insomnia [Unknown]
  - Nasopharyngitis [None]
  - Rales [None]

NARRATIVE: CASE EVENT DATE: 201712
